FAERS Safety Report 15811194 (Version 1)
Quarter: 2019Q1

REPORT INFORMATION
  Report Type: Spontaneous
  Country: MT (occurrence: MT)
  Receive Date: 20190111
  Receipt Date: 20190111
  Transmission Date: 20190417
  Serious: Yes (Other)
  Sender: FDA-Public Use
  Company Number: MT-BRISTOL-MYERS SQUIBB COMPANY-BMS-2018-123923

PATIENT
  Age: 67 Year
  Sex: Female

DRUGS (3)
  1. HEPARIN LEO [Suspect]
     Active Substance: HEPARIN SODIUM
     Indication: ACUTE MYOCARDIAL INFARCTION
     Route: 065
  2. WARFARIN SODIUM. [Suspect]
     Active Substance: WARFARIN SODIUM
     Indication: THROMBOSIS
     Dosage: UNK
     Route: 048
  3. HEPARIN LEO [Suspect]
     Active Substance: HEPARIN SODIUM
     Indication: THROMBOSIS
     Dosage: UNK
     Route: 042

REACTIONS (1)
  - Renal artery thrombosis [Recovered/Resolved]
